FAERS Safety Report 18629457 (Version 1)
Quarter: 2020Q4

REPORT INFORMATION
  Report Type: Spontaneous
  Country: RU (occurrence: RU)
  Receive Date: 20201217
  Receipt Date: 20201217
  Transmission Date: 20210114
  Serious: Yes (Hospitalization)
  Sender: FDA-Public Use
  Company Number: RU-ASTRAZENECA-2020SF65377

PATIENT
  Age: 17 Year
  Sex: Female
  Weight: 140 kg

DRUGS (4)
  1. BERODUAL [Concomitant]
     Active Substance: FENOTEROL HYDROBROMIDE\IPRATROPIUM BROMIDE
     Dosage: 20-30 DROPS
  2. PULMICORT TURBUHALER [Suspect]
     Active Substance: BUDESONIDE
     Indication: RESPIRATORY TRACT INFECTION
     Dosage: 500 MCG DAILY, AND IN CASE OF ADDING OBSTRUCTION, THE DOSE WAS INCREASED TO 1000 MCG
     Route: 055
     Dates: start: 202011
  3. AMIXIN [Concomitant]
     Active Substance: TILORONE
  4. CEFTRIAXONE. [Concomitant]
     Active Substance: CEFTRIAXONE

REACTIONS (2)
  - Off label use [Recovered/Resolved]
  - COVID-19 pneumonia [Recovered/Resolved]

NARRATIVE: CASE EVENT DATE: 202011
